FAERS Safety Report 9984977 (Version 1)
Quarter: 2014Q1

REPORT INFORMATION
  Report Type: Report from Study
  Country: US (occurrence: US)
  Receive Date: 20140307
  Receipt Date: 20140307
  Transmission Date: 20141002
  Serious: No
  Sender: FDA-Public Use
  Company Number: US-ABBVIE-13P-163-1184622-00

PATIENT
  Age: 36 Year
  Sex: Female

DRUGS (7)
  1. HUMIRA [Suspect]
     Indication: CROHN^S DISEASE
     Dates: start: 20130913
  2. XANAX [Concomitant]
     Indication: ANXIETY
     Dosage: AT NIGHT
  3. LORTAB [Concomitant]
     Indication: PRODUCT USED FOR UNKNOWN INDICATION
     Dosage: UP TO 3 TIMES A DAY.  AMOUNT TAKES VARIES DAY TO DAY
  4. CITRACAL [Concomitant]
     Indication: OSTEOPOROSIS
     Dosage: TAKE DAILY WHEN SHE REMEMBERS
  5. MULTIVITAMIN [Concomitant]
     Indication: PRODUCT USED FOR UNKNOWN INDICATION
     Dosage: TAKE DAILY WHEN SHE REMEMBERS
  6. VITAMIN B12 [Concomitant]
     Indication: PRODUCT USED FOR UNKNOWN INDICATION
  7. CELEXA [Concomitant]
     Indication: DEPRESSION

REACTIONS (2)
  - Abdominal pain [Recovering/Resolving]
  - Gastroenteritis viral [Recovered/Resolved]
